FAERS Safety Report 5895857-1 (Version None)
Quarter: 2008Q3

REPORT INFORMATION
  Report Type: 
  Country: None (occurrence: None)
  Receive Date: 20080924
  Receipt Date: 20080912
  Transmission Date: 20090109
  Serious: Yes (Hospitalization)
  Sender: FDA-Public Use
  Company Number: JP-ROCHE-566929

PATIENT
  Sex: Male
  Weight: 63 kg

DRUGS (1)
  1. PEGASYS [Suspect]
     Route: 058
     Dates: start: 20080213, end: 20080514

REACTIONS (3)
  - MALAISE [None]
  - RETINAL DETACHMENT [None]
  - WEIGHT DECREASED [None]
